FAERS Safety Report 5152013-2 (Version None)
Quarter: 2006Q4

REPORT INFORMATION
  Report Type: 
  Country: None (occurrence: None)
  Receive Date: 20061116
  Receipt Date: 20061106
  Transmission Date: 20070319
  Serious: Yes (Hospitalization)
  Sender: FDA-Public Use
  Company Number: AU-JNJFOC-20061101818

PATIENT
  Sex: Female
  Weight: 47 kg

DRUGS (2)
  1. RISPERDAL [Suspect]
     Indication: PSYCHOTIC DISORDER
     Route: 048
  2. LEXAPRO [Suspect]
     Indication: PSYCHOTIC DISORDER
     Route: 048

REACTIONS (6)
  - CIRCULATORY COLLAPSE [None]
  - DROOLING [None]
  - DYSPHAGIA [None]
  - FALL [None]
  - MUSCULOSKELETAL STIFFNESS [None]
  - STARING [None]
